FAERS Safety Report 23966840 (Version 1)
Quarter: 2024Q2

REPORT INFORMATION
  Report Type: Spontaneous
  Country: US (occurrence: US)
  Receive Date: 20240612
  Receipt Date: 20240612
  Transmission Date: 20240716
  Serious: Yes (Hospitalization, Other)
  Sender: FDA-Public Use
  Company Number: US-BELUSA-2024BELLIT0062

PATIENT

DRUGS (3)
  1. DAPTOMYCIN [Suspect]
     Active Substance: DAPTOMYCIN
     Indication: Bacillus bacteraemia
     Dosage: 28-DAY COURSE
     Route: 065
  2. CEFEPIME [Suspect]
     Active Substance: CEFEPIME HYDROCHLORIDE
     Indication: Bacillus bacteraemia
     Dosage: 50 MILLIGRAMS PER KILOGRAM PER DOSE, ADMINISTERED EVERY 8 HOURS
     Route: 065
  3. RIVAROXABAN [Suspect]
     Active Substance: RIVAROXABAN
     Indication: Jugular vein thrombosis
     Route: 065

REACTIONS (1)
  - Liver injury [Recovered/Resolved]
